FAERS Safety Report 5797842-7 (Version None)
Quarter: 2008Q3

REPORT INFORMATION
  Report Type: 
  Country: None (occurrence: None)
  Receive Date: 20080702
  Receipt Date: 20080625
  Transmission Date: 20090109
  Serious: Yes (Death, Life-Threatening, Hospitalization, Disabling)
  Sender: FDA-Public Use
  Company Number: US-JNJFOC-20050900658

PATIENT
  Sex: Male
  Weight: 63 kg

DRUGS (44)
  1. TMC114 [Suspect]
     Route: 048
     Dates: start: 20050317, end: 20051216
  2. TMC114 [Suspect]
     Indication: HIV INFECTION
     Route: 048
     Dates: start: 20050317, end: 20051216
  3. RITONAVIR [Suspect]
     Route: 048
  4. RITONAVIR [Suspect]
     Route: 048
  5. RITONAVIR [Suspect]
     Indication: HIV INFECTION
     Route: 048
  6. TENOFOVIR [Suspect]
     Route: 048
     Dates: start: 20030101, end: 20051216
  7. TENOFOVIR [Suspect]
     Route: 048
     Dates: start: 20030101, end: 20051216
  8. TENOFOVIR [Suspect]
     Dosage: SUBJECT TOOK DRUG BID INSTEAD OF QD AS INSTRUCTED
     Route: 048
     Dates: start: 20030101, end: 20051216
  9. TENOFOVIR [Suspect]
     Indication: HIV INFECTION
     Dosage: SUBJECTED RAN OUT OF MEDICATION, WHICH WASN'T REPLACED
     Route: 048
     Dates: start: 20030101, end: 20051216
  10. STAVUDINE [Concomitant]
     Indication: HIV INFECTION
     Route: 048
     Dates: start: 20050317, end: 20051125
  11. EMTRICITABINE [Concomitant]
     Route: 048
  12. EMTRICITABINE [Concomitant]
     Route: 048
  13. EMTRICITABINE [Concomitant]
     Dosage: SUBJECT TOOK DRUG BID INSTEAD OF QD AS INSTRUCTED
     Route: 048
  14. EMTRICITABINE [Concomitant]
     Indication: HIV INFECTION
     Route: 048
  15. DAPSONE [Concomitant]
     Indication: ANTIFUNGAL PROPHYLAXIS
     Dosage: STARTED PRE TRIAL
     Route: 048
  16. DIFLUCAN [Concomitant]
     Indication: ANTIFUNGAL PROPHYLAXIS
     Dosage: STARTED PRE TRIAL
     Route: 048
  17. METFORMIN HCL [Concomitant]
     Indication: DIABETES MELLITUS
     Dosage: STARTED PRE TRIAL
     Route: 048
  18. GLYBURIDE [Concomitant]
     Indication: DIABETES MELLITUS
     Dosage: STARTED PRE TRIAL
     Route: 048
  19. PROTONIX [Concomitant]
     Indication: GASTROOESOPHAGEAL REFLUX DISEASE
     Dosage: STARTED PRE TRIAL
     Route: 048
  20. SYNTHROID [Concomitant]
     Indication: HYPOTHYROIDISM
     Dosage: STARTED PRE TRIAL
     Route: 048
  21. OXYCONTIN [Concomitant]
     Indication: GASTROOESOPHAGEAL REFLUX DISEASE
     Dosage: STARTED PRE TRIAL
     Route: 048
  22. HUMULIN N [Concomitant]
     Dosage: TAKEN EVERY MORNING
     Route: 058
  23. HUMULIN N [Concomitant]
     Indication: DIABETES MELLITUS
     Dosage: STARTED PRE TRIAL
     Route: 058
  24. HUMULIN R [Concomitant]
     Indication: DIABETES MELLITUS
     Dosage: STARTED PRE TRIAL
     Route: 058
  25. ACETAMINOPHEN [Concomitant]
     Indication: HEADACHE
     Route: 048
     Dates: start: 20050410, end: 20050830
  26. LISINOPRIL [Concomitant]
     Route: 048
  27. LISINOPRIL [Concomitant]
     Indication: HYPERTENSION
     Route: 048
  28. LASIX [Concomitant]
     Indication: MYOCARDIAL INFARCTION
     Route: 048
  29. NITROGLYCERIN [Concomitant]
     Indication: MYOCARDIAL INFARCTION
     Route: 060
  30. LIPITOR [Concomitant]
     Indication: MYOCARDIAL INFARCTION
     Route: 048
  31. PLAVIX [Concomitant]
     Indication: MYOCARDIAL INFARCTION
     Route: 048
  32. NEURONTIN [Concomitant]
     Indication: NEUROPATHY PERIPHERAL
     Route: 048
  33. BACTRIM [Concomitant]
     Indication: ANTIFUNGAL PROPHYLAXIS
     Dosage: 1 DOSE = 1 TABLET, TAKEN EVERY MON, WED, FRI.
     Route: 048
  34. CARVEDILOL [Concomitant]
     Indication: ISCHAEMIC HEART DISEASE PROPHYLAXIS
     Route: 048
  35. LANTUS [Concomitant]
     Indication: DIABETES MELLITUS
     Dosage: 45 DOSES = 45 UNITS
     Route: 058
  36. REGULAR INSULIN [Concomitant]
     Indication: DIABETES MELLITUS
     Route: 058
  37. NOVOLIN R [Concomitant]
     Dosage: TAKEN IN THE MORNING
     Route: 058
  38. NOVOLOG [Concomitant]
     Dosage: FOR SLIDING-SCALE COVERAGE
  39. IMDUR [Concomitant]
     Route: 048
  40. REGLAN [Concomitant]
     Route: 048
  41. ASPIRIN [Concomitant]
     Route: 048
  42. PREVACID [Concomitant]
     Route: 048
  43. ZOCOR [Concomitant]
     Route: 048
  44. AMBIEN [Concomitant]
     Dosage: TAKEN AT BED TIME
     Route: 048

REACTIONS (21)
  - ANGINA UNSTABLE [None]
  - ARTERIAL OCCLUSIVE DISEASE [None]
  - CARDIAC ARREST [None]
  - CARDIAC FAILURE [None]
  - CORONARY ARTERY DISEASE [None]
  - CORONARY ARTERY STENOSIS [None]
  - COSTOCHONDRITIS [None]
  - DISEASE RECURRENCE [None]
  - DRY THROAT [None]
  - HIATUS HERNIA [None]
  - ILEUS [None]
  - LACTIC ACIDOSIS [None]
  - METABOLIC ACIDOSIS [None]
  - MYOCARDIAL INFARCTION [None]
  - MYOCARDIAL ISCHAEMIA [None]
  - NEPHROLITHIASIS [None]
  - NEUROPATHY PERIPHERAL [None]
  - RENAL FAILURE [None]
  - TRACHEITIS [None]
  - VENTRICULAR DYSFUNCTION [None]
  - VENTRICULAR HYPOKINESIA [None]
